FAERS Safety Report 17027764 (Version 2)
Quarter: 2019Q4

REPORT INFORMATION
  Report Type: Spontaneous
  Country: US (occurrence: US)
  Receive Date: 20191113
  Receipt Date: 20191211
  Transmission Date: 20200122
  Serious: Yes (Death, Hospitalization)
  Sender: FDA-Public Use
  Company Number: US-TEVA-2019-US-1135243

PATIENT
  Age: 71 Year
  Sex: Female

DRUGS (2)
  1. PREDNISONE. [Suspect]
     Active Substance: PREDNISONE
     Indication: MYOSITIS
  2. PREDNISONE. [Suspect]
     Active Substance: PREDNISONE
     Indication: SCIATICA
     Route: 048

REACTIONS (11)
  - Osteomyelitis [Fatal]
  - Staphylococcal infection [Fatal]
  - Meningitis [Fatal]
  - Embolic stroke [Fatal]
  - Intervertebral discitis [Unknown]
  - Septic shock [Fatal]
  - Psoas abscess [Fatal]
  - Endocarditis staphylococcal [Fatal]
  - Extradural abscess [Fatal]
  - Acute kidney injury [Fatal]
  - Multiple organ dysfunction syndrome [Fatal]
